FAERS Safety Report 14350237 (Version 4)
Quarter: 2018Q1

REPORT INFORMATION
  Report Type: Spontaneous
  Country: US (occurrence: US)
  Receive Date: 20180104
  Receipt Date: 20180222
  Transmission Date: 20180509
  Serious: No
  Sender: FDA-Public Use
  Company Number: US-PFIZER INC-2018003444

PATIENT
  Age: 52 Year
  Sex: Female

DRUGS (1)
  1. XELJANZ XR [Suspect]
     Active Substance: TOFACITINIB CITRATE
     Dosage: 11 MG, UNK
     Dates: start: 201711

REACTIONS (6)
  - Pain [Unknown]
  - Sinus disorder [Unknown]
  - Coating in mouth [Unknown]
  - Dermatitis infected [Unknown]
  - White blood cell count increased [Unknown]
  - Fungal infection [Unknown]
